FAERS Safety Report 15560053 (Version 1)
Quarter: 2018Q4

REPORT INFORMATION
  Report Type: Spontaneous
  Country: US (occurrence: US)
  Receive Date: 20181028
  Receipt Date: 20181028
  Transmission Date: 20190205
  Serious: No
  Sender: FDA-Public Use
  Company Number: None

PATIENT
  Age: 66 Year
  Sex: Female
  Weight: 49.5 kg

DRUGS (6)
  1. MIRTAZEPAM [Concomitant]
     Active Substance: MIRTAZAPINE
  2. TEMAZEPAM. [Concomitant]
     Active Substance: TEMAZEPAM
  3. AIMOVIG [Suspect]
     Active Substance: ERENUMAB-AOOE
     Indication: MIGRAINE
     Dosage: ?          OTHER FREQUENCY:ONE SHOT MONTHLY;?
     Route: 058
     Dates: start: 20181003
  4. CINGULAR [Concomitant]
  5. NORTRIPTYLINE [Concomitant]
     Active Substance: NORTRIPTYLINE
  6. ACETAMINOPHEN CODINE 3 [Concomitant]

REACTIONS (1)
  - Pruritus [None]

NARRATIVE: CASE EVENT DATE: 20181028
